FAERS Safety Report 6722704-8 (Version None)
Quarter: 2010Q2

REPORT INFORMATION
  Report Type: 
  Country: None (occurrence: None)
  Receive Date: 20100512
  Receipt Date: 20100429
  Transmission Date: 20101027
  Serious: Yes (Other)
  Sender: FDA-Public Use
  Company Number: GB-AMGEN-US400684

PATIENT
  Sex: Female
  Weight: 79.25 kg

DRUGS (7)
  1. ENBREL [Suspect]
     Indication: RHEUMATOID ARTHRITIS
     Route: 058
     Dates: start: 20070227, end: 20100208
  2. LORATADINE [Concomitant]
     Dosage: UNKNOWN
  3. QUININE [Concomitant]
     Dosage: UNKNOWN
  4. NAPROXEN [Concomitant]
     Dosage: UNKNOWN
  5. ACETAMINOPHEN AND CODEINE PHOSPHATE [Concomitant]
     Dosage: UNKNOWN
  6. IRBESARTAN [Concomitant]
     Dosage: UNKNOWN
  7. UNSPECIFIED HORMONE REPLACEMENT THERAPY AGENT [Concomitant]

REACTIONS (8)
  - DERMAL SINUS [None]
  - INJECTION SITE DISCOLOURATION [None]
  - INJECTION SITE EXFOLIATION [None]
  - INJECTION SITE INFECTION [None]
  - INJECTION SITE PAIN [None]
  - INJECTION SITE REACTION [None]
  - INJECTION SITE ULCER [None]
  - SKIN DISORDER [None]
